FAERS Safety Report 13273232 (Version 1)
Quarter: 2017Q1

REPORT INFORMATION
  Report Type: Spontaneous
  Country: CZ (occurrence: CZ)
  Receive Date: 20170227
  Receipt Date: 20170227
  Transmission Date: 20170428
  Serious: Yes (Other)
  Sender: FDA-Public Use
  Company Number: CZ-VALIDUS PHARMACEUTICALS LLC-CZ-2017VAL000278

PATIENT
  Sex: Male

DRUGS (4)
  1. METOPROLOL TARTRATE. [Suspect]
     Active Substance: METOPROLOL TARTRATE
     Indication: HYPERTENSION
     Dosage: 25 MG, BID
     Route: 065
  2. RAMIPRIL. [Suspect]
     Active Substance: RAMIPRIL
     Dosage: 5 MG, BID
     Route: 065
  3. RAMIPRIL. [Suspect]
     Active Substance: RAMIPRIL
     Indication: HYPERTENSION
     Dosage: 2.5 MG, QD
  4. METOPROLOL TARTRATE. [Suspect]
     Active Substance: METOPROLOL TARTRATE
     Dosage: 50 MG, BID
     Route: 065

REACTIONS (3)
  - Dyspnoea [Unknown]
  - Oedema [Unknown]
  - Hypertension [Unknown]

NARRATIVE: CASE EVENT DATE: 2010
